FAERS Safety Report 15795740 (Version 1)
Quarter: 2019Q1

REPORT INFORMATION
  Report Type: Spontaneous
  Country: PL (occurrence: PL)
  Receive Date: 20190107
  Receipt Date: 20190107
  Transmission Date: 20190417
  Serious: Yes (Life-Threatening, Hospitalization)
  Sender: FDA-Public Use
  Company Number: PL-MYLANLABS-2019M1000395

PATIENT
  Age: 70 Year
  Sex: Female
  Weight: 77 kg

DRUGS (6)
  1. CARBOPLATIN. [Suspect]
     Active Substance: CARBOPLATIN
     Indication: SMALL CELL LUNG CANCER
     Dosage: ON -DAY 1
     Route: 050
  2. ETOPOSIDE. [Suspect]
     Active Substance: ETOPOSIDE
     Indication: SMALL CELL LUNG CANCER
     Dosage: ON -DAY 1-3
     Route: 050
  3. CISPLATIN. [Suspect]
     Active Substance: CISPLATIN
     Indication: SMALL CELL LUNG CANCER
     Dosage: ON DAYS 1-3
     Route: 050
  4. ETOPOSIDE. [Suspect]
     Active Substance: ETOPOSIDE
     Dosage: ON DAYS 1-3
     Route: 050
  5. CLOPIDOGREL [Suspect]
     Active Substance: CLOPIDOGREL BISULFATE
     Indication: ANTICOAGULANT THERAPY
     Route: 065
  6. ACETYLSALICYLIC ACID [Suspect]
     Active Substance: ASPIRIN
     Indication: ANTIPLATELET THERAPY
     Route: 065

REACTIONS (5)
  - Pancytopenia [Recovering/Resolving]
  - Tumour lysis syndrome [Recovering/Resolving]
  - Acute myocardial infarction [Recovering/Resolving]
  - Respiratory failure [Recovering/Resolving]
  - Haemoglobin decreased [Recovering/Resolving]
